FAERS Safety Report 23592871 (Version 1)
Quarter: 2024Q1

REPORT INFORMATION
  Report Type: Spontaneous
  Country: US (occurrence: None)
  Receive Date: 20240303
  Receipt Date: 20240303
  Transmission Date: 20240409
  Serious: Yes (Hospitalization)
  Sender: FDA-Public Use
  Company Number: None

PATIENT
  Age: 41 Year
  Sex: Female

DRUGS (2)
  1. HERBALS\HONEY [Suspect]
     Active Substance: HERBALS\HONEY
  2. HERBALS\HONEY [Concomitant]
     Active Substance: HERBALS\HONEY
     Dates: start: 20240303, end: 20240303

REACTIONS (4)
  - Musculoskeletal disorder [None]
  - Fall [None]
  - Hypotension [None]
  - Drug abuse [None]

NARRATIVE: CASE EVENT DATE: 20240303
